FAERS Safety Report 15107561 (Version 1)
Quarter: 2018Q3

REPORT INFORMATION
  Report Type: Spontaneous
  Country: US (occurrence: US)
  Receive Date: 20180704
  Receipt Date: 20180704
  Transmission Date: 20181010
  Serious: No
  Sender: FDA-Public Use
  Company Number: US-JNJFOC-20180624280

PATIENT
  Age: 44 Year
  Sex: Female
  Weight: 58.97 kg

DRUGS (3)
  1. VISINE [Suspect]
     Active Substance: TETRAHYDROZOLINE HYDROCHLORIDE
     Indication: EYE IRRITATION
     Dosage: SOME
     Route: 047
  2. NEUTROGENA AGE SHIELD FACE SUNSCREEN LOT SPF70 / SUNBLOCK [Concomitant]
     Indication: PRODUCT USED FOR UNKNOWN INDICATION
     Route: 065
  3. VISINE [Suspect]
     Active Substance: TETRAHYDROZOLINE HYDROCHLORIDE
     Indication: HYPERSENSITIVITY
     Dosage: SOME
     Route: 047

REACTIONS (1)
  - Product use in unapproved indication [Unknown]
